FAERS Safety Report 17245062 (Version 2)
Quarter: 2020Q1

REPORT INFORMATION
  Report Type: Spontaneous
  Country: US (occurrence: US)
  Receive Date: 20200108
  Receipt Date: 20200117
  Transmission Date: 20200409
  Serious: No
  Sender: FDA-Public Use
  Company Number: US-AMGEN-USASP2019217976

PATIENT
  Weight: 63 kg

DRUGS (10)
  1. ENBREL [Suspect]
     Active Substance: ETANERCEPT
     Indication: PRODUCT USED FOR UNKNOWN INDICATION
     Dosage: UNK
     Route: 065
  2. RITUXAN [Concomitant]
     Active Substance: RITUXIMAB
     Dosage: UNK
     Route: 065
  3. METHOTREXATE. [Concomitant]
     Active Substance: METHOTREXATE
     Dosage: 15 MILLIGRAM, QWK
     Route: 065
  4. ACTEMRA [Concomitant]
     Active Substance: TOCILIZUMAB
     Dosage: UNK
     Route: 065
  5. XELJANZ XR [Concomitant]
     Active Substance: TOFACITINIB CITRATE
     Indication: RHEUMATOID ARTHRITIS
     Dosage: 11 MILLIGRAM, QD
     Route: 065
  6. FOSAMAX [Concomitant]
     Active Substance: ALENDRONATE SODIUM
     Dosage: UNK
     Route: 065
     Dates: start: 2011, end: 2015
  7. HUMIRA [Concomitant]
     Active Substance: ADALIMUMAB
     Dosage: UNK
     Route: 058
  8. FOLIC ACID. [Concomitant]
     Active Substance: FOLIC ACID
     Dosage: 1 GRAM, QD
     Route: 065
  9. SULFASALAZINE. [Concomitant]
     Active Substance: SULFASALAZINE
     Dosage: 1 GRAM, BID
     Route: 065
  10. ORENCIA [Concomitant]
     Active Substance: ABATACEPT
     Dosage: UNK
     Route: 065

REACTIONS (20)
  - Gastrointestinal disorder [Unknown]
  - Joint swelling [Recovered/Resolved]
  - Arthralgia [Recovered/Resolved]
  - Swelling of eyelid [Unknown]
  - Lipids abnormal [Unknown]
  - Rash [Unknown]
  - Eye pruritus [Unknown]
  - Fatigue [Unknown]
  - Nausea [Unknown]
  - Pain in extremity [Unknown]
  - Vaginal infection [Recovered/Resolved]
  - Nervous system disorder [Unknown]
  - Lip swelling [Unknown]
  - Infection [Unknown]
  - Asthenia [Unknown]
  - Musculoskeletal stiffness [Recovered/Resolved]
  - Peripheral swelling [Unknown]
  - Hypersensitivity [Unknown]
  - Drug ineffective [Unknown]
  - Paraesthesia [Unknown]

NARRATIVE: CASE EVENT DATE: 201910
